FAERS Safety Report 5189223-4 (Version None)
Quarter: 2006Q4

REPORT INFORMATION
  Report Type: 
  Country: None (occurrence: None)
  Receive Date: 20061215
  Receipt Date: 20061204
  Transmission Date: 20070319
  Serious: Yes (Hospitalization)
  Sender: FDA-Public Use
  Company Number: SPV1-2006-02134

PATIENT
  Age: 23 Year
  Sex: Female

DRUGS (2)
  1. PENTASA [Suspect]
     Indication: COLITIS ULCERATIVE
     Dosage: 500 MG 3XS DAILY; ORAL, 1000 MG 3XS DAILY,
     Route: 048
     Dates: start: 20061107, end: 20061120
  2. PENTASA [Suspect]
     Indication: COLITIS ULCERATIVE
     Dosage: 500 MG 3XS DAILY; ORAL, 1000 MG 3XS DAILY,
     Route: 048
     Dates: start: 20061120, end: 20061123

REACTIONS (7)
  - CHEST PAIN [None]
  - HAEMOGLOBIN DECREASED [None]
  - HEADACHE [None]
  - HEART RATE INCREASED [None]
  - PLEURISY [None]
  - PNEUMONIA [None]
  - RHINORRHOEA [None]
